FAERS Safety Report 5694859-8 (Version None)
Quarter: 2008Q2

REPORT INFORMATION
  Report Type: 
  Country: None (occurrence: None)
  Receive Date: 20080404
  Receipt Date: 20080110
  Transmission Date: 20081010
  Serious: No
  Sender: FDA-Public Use
  Company Number: A0684368A

PATIENT
  Age: 69 Year
  Sex: Female

DRUGS (2)
  1. ADVAIR HFA [Suspect]
     Indication: CHRONIC OBSTRUCTIVE PULMONARY DISEASE
     Dosage: 2SPR TWICE PER DAY
     Route: 055
     Dates: start: 20070701
  2. DILTIAZEM [Concomitant]

REACTIONS (3)
  - DRUG INEFFECTIVE [None]
  - PHARMACEUTICAL PRODUCT COMPLAINT [None]
  - WHEEZING [None]
